FAERS Safety Report 20456399 (Version 1)
Quarter: 2022Q1

REPORT INFORMATION
  Report Type: Report from Study
  Country: GB (occurrence: GB)
  Receive Date: 20220210
  Receipt Date: 20220210
  Transmission Date: 20220423
  Serious: Yes (Hospitalization)
  Sender: FDA-Public Use
  Company Number: GB-CELGENE-GBR-20220201348

PATIENT
  Age: 64 Year
  Sex: Male

DRUGS (3)
  1. REVLIMID [Suspect]
     Active Substance: LENALIDOMIDE
     Indication: Plasma cell myeloma
     Route: 048
  2. IBRUTINIB [Suspect]
     Active Substance: IBRUTINIB
     Indication: Plasma cell myeloma
     Dosage: AS PER PROTOCOL
     Route: 048
     Dates: start: 20200220, end: 20211117
  3. VENETOCLAX [Suspect]
     Active Substance: VENETOCLAX
     Indication: Plasma cell myeloma
     Dosage: AS PER PROTOCOL
     Route: 048
     Dates: start: 20200903, end: 20211117

REACTIONS (1)
  - COVID-19 [Recovered/Resolved with Sequelae]

NARRATIVE: CASE EVENT DATE: 20211117
